FAERS Safety Report 12759440 (Version 1)
Quarter: 2016Q3

REPORT INFORMATION
  Report Type: Spontaneous
  Country: US (occurrence: US)
  Receive Date: 20160919
  Receipt Date: 20160919
  Transmission Date: 20161109
  Serious: No
  Sender: FDA-Public Use
  Company Number: None

PATIENT
  Age: 28 Year
  Sex: Female
  Weight: 69.75 kg

DRUGS (1)
  1. MIDOL [Suspect]
     Active Substance: IBUPROFEN
     Indication: ABDOMINAL PAIN UPPER
     Dosage: 2 TABLETS ORAL
     Route: 048
     Dates: start: 20160914, end: 20160914

REACTIONS (4)
  - Muscle spasms [None]
  - Migraine [None]
  - Vomiting [None]
  - Expired product administered [None]

NARRATIVE: CASE EVENT DATE: 20160914
